FAERS Safety Report 10412208 (Version 1)
Quarter: 2014Q2

REPORT INFORMATION
  Report Type: Spontaneous
  Country: US (occurrence: None)
  Receive Date: 20140604
  Receipt Date: 20140604
  Transmission Date: 20141212
  Serious: Yes (Hospitalization)
  Sender: FDA-Public Use
  Company Number: 20090508CINRY0956

PATIENT
  Age: 34 Year
  Sex: Male
  Weight: 120.2 kg

DRUGS (1)
  1. CINRYZE [Suspect]
     Indication: HEREDITARY ANGIOEDEMA
     Dosage: 1 IN 3D
     Route: 042

REACTIONS (1)
  - Hereditary angioedema [None]
